FAERS Safety Report 17466745 (Version 2)
Quarter: 2020Q1

REPORT INFORMATION
  Report Type: Spontaneous
  Country: DE (occurrence: DE)
  Receive Date: 20200227
  Receipt Date: 20200313
  Transmission Date: 20200409
  Serious: Yes (Hospitalization, Other)
  Sender: FDA-Public Use
  Company Number: NVSC2020DE052249

PATIENT
  Sex: Male
  Weight: 70 kg

DRUGS (2)
  1. FILGRASTIM HEXAL 48 MU/0.5 ML SOLUTION FOR INJECTION OR INFUSION IN PR [Suspect]
     Active Substance: FILGRASTIM
     Indication: HAEMATOPOIETIC STEM CELL MOBILISATION
     Dosage: 300 UNK, UNKNOWN
     Route: 058
     Dates: start: 20200207, end: 20200211
  2. FILGRASTIM HEXAL 30 MU/0.5 ML SOLUTION FOR INJECTION OR INFUSION IN PR [Suspect]
     Active Substance: FILGRASTIM
     Indication: HAEMATOPOIETIC STEM CELL MOBILISATION
     Dosage: 480 UNK, UNKNOWN
     Route: 058
     Dates: start: 20200207, end: 20200211

REACTIONS (5)
  - Chest pain [Recovered/Resolved]
  - Myocarditis [Recovered/Resolved]
  - Fatigue [Recovered/Resolved]
  - Granulocyte-colony stimulating factor level increased [Recovered/Resolved]
  - Blood creatine phosphokinase increased [Unknown]

NARRATIVE: CASE EVENT DATE: 20200212
